FAERS Safety Report 8482477-8 (Version None)
Quarter: 2012Q3

REPORT INFORMATION
  Report Type: 
  Country: None (occurrence: None)
  Receive Date: 20120702
  Receipt Date: 20120625
  Transmission Date: 20120928
  Serious: Yes (Other)
  Sender: FDA-Public Use
  Company Number: JP-JNJFOC-20120511046

PATIENT
  Age: 46 Year
  Sex: Female

DRUGS (11)
  1. TRAMADOL HCL [Suspect]
     Route: 048
  2. CELEBREX [Concomitant]
     Indication: PAIN
     Dosage: ONCE DAILY
     Route: 048
     Dates: start: 20120110
  3. LYRICA [Concomitant]
     Indication: PAIN
     Dosage: ONCE DAILY
     Route: 048
     Dates: start: 20120110, end: 20120312
  4. TRAMADOL HCL [Suspect]
     Dosage: 1 PER 1 DAY
     Route: 048
     Dates: start: 20120313
  5. TRAMADOL HCL [Suspect]
     Indication: PAIN
     Route: 048
  6. NEUROTROPIN [Concomitant]
     Indication: PAIN
     Dosage: ONCE DAILY
     Route: 048
     Dates: start: 20120110
  7. LANSOPRAZOLE [Concomitant]
     Indication: GASTROOESOPHAGEAL REFLUX DISEASE
     Dosage: ONCE DAILY
     Route: 048
     Dates: start: 20120110
  8. TRAMADOL HCL [Suspect]
     Dosage: 1 PER 1 DAY
     Route: 048
     Dates: start: 20120110, end: 20120309
  9. ACETAMINOPHEN [Concomitant]
     Indication: PAIN
     Dosage: ONCE DAILY
     Route: 048
     Dates: start: 20120110
  10. ALLEGRA [Concomitant]
     Indication: RHINITIS ALLERGIC
     Dosage: ONCE DAILY
     Route: 048
  11. TRAMADOL HCL [Suspect]
     Route: 048
     Dates: end: 20120109

REACTIONS (1)
  - WITHDRAWAL SYNDROME [None]
